FAERS Safety Report 9254889 (Version 1)
Quarter: 2013Q1

REPORT INFORMATION
  Report Type: Spontaneous
  Country: US (occurrence: None)
  Receive Date: 20121203
  Receipt Date: 20121203
  Transmission Date: 20140127
  Serious: Yes (Hospitalization, Other)
  Sender: FDA-Public Use
  Company Number: 1210USA000350

PATIENT
  Sex: 0

DRUGS (2)
  1. JANUMET (SITAGLIPTIN PHOSPHATE (+) METFORMIN HYDROCHLORIDE) FILM-COATED TABLET [Suspect]
     Dosage: , ORAL
  2. VICTOZA (LIRAGLUTIDE) SOLUTION FOR INJECTION, 6MG [Suspect]
     Route: 058

REACTIONS (1)
  - Pancreatitis [None]
